FAERS Safety Report 4327821-8 (Version None)
Quarter: 2004Q1

REPORT INFORMATION
  Report Type: 
  Country: None (occurrence: None)
  Receive Date: 20040331
  Receipt Date: 20040325
  Transmission Date: 20041129
  Serious: Yes (Hospitalization)
  Sender: FDA-Public Use
  Company Number: MX-BRISTOL-MYERS SQUIBB COMPANY-12543096

PATIENT
  Age: 70 Year
  Sex: Male

DRUGS (2)
  1. TEQUIN [Suspect]
     Indication: URINARY TRACT INFECTION
     Route: 048
     Dates: start: 20040208, end: 20040210
  2. AMARYL [Concomitant]
     Route: 048

REACTIONS (1)
  - HYPOGLYCAEMIA [None]
